FAERS Safety Report 5999714-1 (Version None)
Quarter: 2008Q4

REPORT INFORMATION
  Report Type: 
  Country: None (occurrence: None)
  Receive Date: 20081211
  Receipt Date: 20081211
  Transmission Date: 20090506
  Serious: Yes (Other)
  Sender: FDA-Public Use
  Company Number: None

PATIENT
  Age: 31 Year
  Sex: Male
  Weight: 63.5036 kg

DRUGS (2)
  1. TRILEPTAL [Suspect]
     Indication: AFFECTIVE DISORDER
     Dosage: 300MG TWICE DAILY PO
     Route: 048
     Dates: start: 20081128, end: 20081129
  2. TRILEPTAL [Suspect]
     Dosage: 600MG TWICE DAILY PO
     Route: 048
     Dates: start: 20081129, end: 20081208

REACTIONS (2)
  - RASH PAPULAR [None]
  - RASH PRURITIC [None]
